FAERS Safety Report 8377312-2 (Version None)
Quarter: 2012Q2

REPORT INFORMATION
  Report Type: 
  Country: None (occurrence: None)
  Receive Date: 20120522
  Receipt Date: 20120507
  Transmission Date: 20120825
  Serious: Yes (Other)
  Sender: FDA-Public Use
  Company Number: US-JUTA GMBH-2012-08189

PATIENT
  Age: 30 Year
  Sex: Male

DRUGS (1)
  1. RISPERIDONE [Suspect]
     Indication: CHOREA
     Dosage: 0.5 MG, DAILY
     Route: 048

REACTIONS (2)
  - PARADOXICAL DRUG REACTION [None]
  - CHOREA [None]
